FAERS Safety Report 16524519 (Version 1)
Quarter: 2019Q3

REPORT INFORMATION
  Report Type: Report from Study
  Country: US (occurrence: US)
  Receive Date: 20190703
  Receipt Date: 20190703
  Transmission Date: 20191004
  Serious: Yes (Other)
  Sender: FDA-Public Use
  Company Number: US-PFIZER INC-2019279761

PATIENT
  Age: 23 Year
  Sex: Male

DRUGS (13)
  1. AMIKACIN SULFATE. [Suspect]
     Active Substance: AMIKACIN SULFATE
     Dosage: 1 G, (IN 5L 0.9% NORMAL SALINE)
  2. AMIKACIN SULFATE. [Suspect]
     Active Substance: AMIKACIN SULFATE
     Indication: CYSTIC FIBROSIS
     Dosage: 20 MG/KG, (3X WEEKLY)
     Route: 042
     Dates: start: 201609
  3. IMIPENEM [Concomitant]
     Active Substance: IMIPENEM
     Indication: MYCOBACTERIUM ABSCESSUS INFECTION
     Dosage: 1 G, 3X/DAY
     Route: 042
  4. AZITHROMYCIN ANHYDROUS. [Concomitant]
     Active Substance: AZITHROMYCIN ANHYDROUS
     Indication: MYCOBACTERIUM ABSCESSUS INFECTION
     Dosage: 250 MG, DAILY
     Route: 048
  5. NORMAL SALINE [Concomitant]
     Active Substance: SODIUM CHLORIDE
     Indication: IRRIGATION THERAPY
     Dosage: 5 L, (0.9%)
  6. AMIKACIN SULFATE. [Suspect]
     Active Substance: AMIKACIN SULFATE
     Indication: MYCOBACTERIUM ABSCESSUS INFECTION
     Dosage: 20 MG/KG, DAILY
     Route: 042
     Dates: end: 201609
  7. AZITHROMYCIN ANHYDROUS. [Concomitant]
     Active Substance: AZITHROMYCIN ANHYDROUS
     Indication: CYSTIC FIBROSIS
     Dosage: 250 MG, DAILY
     Route: 048
  8. CEFOXITIN [Concomitant]
     Active Substance: CEFOXITIN SODIUM
     Indication: MYCOBACTERIUM ABSCESSUS INFECTION
     Dosage: 8 G, DAILY
  9. IMIPENEM [Concomitant]
     Active Substance: IMIPENEM
     Indication: CYSTIC FIBROSIS
  10. CLOFAZIMINE [Concomitant]
     Active Substance: CLOFAZIMINE
     Indication: CYSTIC FIBROSIS
     Dosage: 100 MG, DAILY
     Route: 048
  11. AMIKACIN SULFATE. [Suspect]
     Active Substance: AMIKACIN SULFATE
     Dosage: 20 MG/KG, (3X WEEKLY)
     Route: 042
  12. CLOFAZIMINE [Concomitant]
     Active Substance: CLOFAZIMINE
     Indication: MYCOBACTERIUM ABSCESSUS INFECTION
     Dosage: 100 MG, DAILY
     Route: 048
  13. CEFOXITIN [Concomitant]
     Active Substance: CEFOXITIN SODIUM
     Indication: CYSTIC FIBROSIS

REACTIONS (4)
  - Nephropathy toxic [Unknown]
  - Deafness neurosensory [Unknown]
  - Ototoxicity [Unknown]
  - Acute kidney injury [Unknown]
